FAERS Safety Report 9977524 (Version 1)
Quarter: 2014Q1

REPORT INFORMATION
  Report Type: Report from Study
  Country: US (occurrence: US)
  Receive Date: 20140306
  Receipt Date: 20140306
  Transmission Date: 20141002
  Serious: No
  Sender: FDA-Public Use
  Company Number: US-ABBVIE-13P-163-1163076-00

PATIENT
  Age: 60 Year
  Sex: Male

DRUGS (17)
  1. HUMIRA [Suspect]
     Indication: PSORIATIC ARTHROPATHY
     Dates: start: 201309
  2. ATORVASTATIN CALCIUM [Concomitant]
     Indication: BLOOD CHOLESTEROL
     Route: 048
  3. METFORMIN HYDROCHLORIDE [Concomitant]
     Indication: DIABETES MELLITUS
     Dosage: WITH FOOD
  4. GLIPIZIDE [Concomitant]
     Indication: DIABETES MELLITUS
     Dosage: 30 MINUTES BEFORE BREAKFAST AND DINNER
     Route: 048
  5. INSULIN [Concomitant]
     Indication: DIABETES MELLITUS
     Dosage: AT NIGHT
  6. LISINOPRIL [Concomitant]
     Indication: HYPERTENSION
     Dosage: AT SLEEP
     Route: 048
  7. CLOPIDOGREL [Concomitant]
     Indication: CARDIAC DISORDER
     Route: 048
  8. CLOPIDOGREL [Concomitant]
     Indication: CORONARY ARTERIAL STENT INSERTION
  9. FENOFIBRATE [Concomitant]
     Indication: PRODUCT USED FOR UNKNOWN INDICATION
     Dosage: DAILY WITH FOOD
  10. CARVEDILOL [Concomitant]
     Indication: HYPERTENSION
     Route: 048
  11. CARVEDILOL [Concomitant]
     Indication: CARDIAC DISORDER
  12. FLUOXETINE [Concomitant]
     Indication: DEPRESSION
     Route: 048
  13. FAMOTIDINE [Concomitant]
     Indication: GASTROOESOPHAGEAL REFLUX DISEASE
     Route: 048
  14. METHOCARBAMOL [Concomitant]
     Indication: MUSCLE SPASMS
     Dosage: AS NEEDED
  15. NTG [Concomitant]
     Indication: PRODUCT USED FOR UNKNOWN INDICATION
     Dosage: PLACE IN AM, REMOVE IN PM BEFORE BED
  16. ASA [Concomitant]
     Indication: PRODUCT USED FOR UNKNOWN INDICATION
  17. OTC STOOL SOFTENER [Concomitant]
     Indication: CONSTIPATION

REACTIONS (8)
  - Joint warmth [Not Recovered/Not Resolved]
  - Joint swelling [Not Recovered/Not Resolved]
  - Arthralgia [Not Recovered/Not Resolved]
  - Psoriatic arthropathy [Not Recovered/Not Resolved]
  - Arthralgia [Not Recovered/Not Resolved]
  - Pain in extremity [Not Recovered/Not Resolved]
  - Musculoskeletal pain [Not Recovered/Not Resolved]
  - Drug effect decreased [Not Recovered/Not Resolved]
